FAERS Safety Report 26180798 (Version 1)
Quarter: 2025Q4

REPORT INFORMATION
  Report Type: Spontaneous
  Country: US (occurrence: US)
  Receive Date: 20251221
  Receipt Date: 20251221
  Transmission Date: 20260118
  Serious: No
  Sender: UROGEN PHARMA
  Company Number: US-UROGEN PHARMA LTD.-2025-UGN-000207

PATIENT

DRUGS (2)
  1. ZUSDURI [Suspect]
     Active Substance: MITOMYCIN
     Indication: Bladder transitional cell carcinoma
     Dosage: 75 MILLIGRAM, ONCE A WEEK (INSTILLATION)
     Dates: start: 20251001, end: 20251001
  2. ZUSDURI [Suspect]
     Active Substance: MITOMYCIN
     Dosage: 75 MILLIGRAM, ONCE A WEEK (INSTILLATION)
     Dates: start: 20251008, end: 20251008

REACTIONS (2)
  - Eye irritation [Unknown]
  - Pruritus [Unknown]

NARRATIVE: CASE EVENT DATE: 20251015
